FAERS Safety Report 4647457-9 (Version None)
Quarter: 2005Q2

REPORT INFORMATION
  Report Type: 
  Country: None (occurrence: None)
  Receive Date: 20050428
  Receipt Date: 20050418
  Transmission Date: 20051028
  Serious: Yes (Other)
  Sender: FDA-Public Use
  Company Number: CA-JNJFOC-20050300656

PATIENT
  Sex: Female

DRUGS (6)
  1. TOPAMAX [Suspect]
     Route: 049
  2. TOPAMAX [Suspect]
     Route: 049
  3. TOPAMAX [Suspect]
     Route: 049
  4. PANTOPRAZOLE SODIUM [Concomitant]
     Indication: ULCER
     Route: 065
  5. MINIPRESS [Concomitant]
     Route: 065
  6. PRAVIX [Concomitant]

REACTIONS (14)
  - ABNORMAL DREAMS [None]
  - ANXIETY [None]
  - APHASIA [None]
  - ASTHENIA [None]
  - CEREBROVASCULAR ACCIDENT [None]
  - CHEST DISCOMFORT [None]
  - DEPRESSION [None]
  - DIZZINESS [None]
  - DYSPNOEA [None]
  - EPISTAXIS [None]
  - EYE PAIN [None]
  - GINGIVAL DISORDER [None]
  - MYALGIA [None]
  - SUICIDAL IDEATION [None]
